FAERS Safety Report 9057325 (Version 1)
Quarter: 2013Q1

REPORT INFORMATION
  Report Type: Spontaneous
  Country: DE (occurrence: DE)
  Receive Date: 20130131
  Receipt Date: 20130131
  Transmission Date: 20140127
  Serious: Yes (Other)
  Sender: FDA-Public Use
  Company Number: DE-AMGEN-DEUSP2013006965

PATIENT
  Age: 59 Year
  Sex: Female

DRUGS (3)
  1. ENBREL [Suspect]
     Indication: RHEUMATOID ARTHRITIS
     Dosage: 25 MG, 2X/WEEK
     Dates: start: 20121204, end: 20130123
  2. SANDIMMUN NEORAL [Interacting]
     Dosage: UNK
  3. CORTISONE [Concomitant]
     Dosage: 20 MG, UNK

REACTIONS (2)
  - Drug interaction [Not Recovered/Not Resolved]
  - Polychondritis [Not Recovered/Not Resolved]
